FAERS Safety Report 9557630 (Version 1)
Quarter: 2013Q3

REPORT INFORMATION
  Report Type: Spontaneous
  Country: US (occurrence: US)
  Receive Date: 20130926
  Receipt Date: 20130926
  Transmission Date: 20140515
  Serious: Yes (Hospitalization)
  Sender: FDA-Public Use
  Company Number: US-B.I. PHARMACEUTICALS,INC./RIDGEFIELD-2013-BI-29801BP

PATIENT
  Age: 79 Year
  Sex: Female
  Weight: 47 kg

DRUGS (6)
  1. COMBIVENT [Suspect]
     Indication: CHRONIC OBSTRUCTIVE PULMONARY DISEASE
     Dosage: STRENGTH: 18 MCG / 103 MCG; DAILY DOSE: 144 MCG / 824 MCG
     Route: 055
     Dates: start: 1999, end: 201303
  2. SYMBICORT [Concomitant]
     Indication: CHRONIC OBSTRUCTIVE PULMONARY DISEASE
     Dosage: STRENGTH: 1 INHALATION; DAILY DOSE: 2 INHALATIONS
     Route: 055
  3. IMDUR [Concomitant]
     Indication: HYPERTENSION
     Dosage: 60 MG
     Route: 048
  4. NORVASC [Concomitant]
     Indication: HYPERTENSION
     Dosage: 2.5 MG
     Route: 048
  5. ASPIRIN [Concomitant]
     Indication: MYOCARDIAL INFARCTION
     Dosage: 81 MG
     Route: 048
  6. PREMARIN [Concomitant]
     Indication: HYSTERECTOMY
     Dosage: 0.625 MG
     Route: 048

REACTIONS (2)
  - Pneumonia [Recovered/Resolved]
  - Pulmonary oedema [Recovered/Resolved]
